FAERS Safety Report 15583056 (Version 1)
Quarter: 2018Q4

REPORT INFORMATION
  Report Type: Spontaneous
  Country: FR (occurrence: FR)
  Receive Date: 20181103
  Receipt Date: 20181103
  Transmission Date: 20190205
  Serious: Yes (Hospitalization)
  Sender: FDA-Public Use
  Company Number: FR-SUN PHARMACEUTICAL INDUSTRIES LTD-2018RR-190029

PATIENT
  Age: 12 Year
  Sex: Female
  Weight: 38.7 kg

DRUGS (1)
  1. PARACETAMOL [Suspect]
     Active Substance: ACETAMINOPHEN
     Indication: TOXICITY TO VARIOUS AGENTS
     Route: 048
     Dates: start: 20181002, end: 20181002

REACTIONS (4)
  - Toxicity to various agents [Recovered/Resolved]
  - Prothrombin time ratio decreased [Not Recovered/Not Resolved]
  - Vomiting [Recovered/Resolved]
  - Analgesic drug level increased [Unknown]

NARRATIVE: CASE EVENT DATE: 20181002
